FAERS Safety Report 14138847 (Version 1)
Quarter: 2017Q4

REPORT INFORMATION
  Report Type: Spontaneous
  Country: FR (occurrence: FR)
  Receive Date: 20171027
  Receipt Date: 20171027
  Transmission Date: 20180321
  Serious: Yes (Life-Threatening, Hospitalization, Other)
  Sender: FDA-Public Use
  Company Number: FR-BRISTOL-MYERS SQUIBB COMPANY-BMS-2017-095533

PATIENT
  Age: 81 Year
  Sex: Male

DRUGS (1)
  1. OPDIVO [Suspect]
     Active Substance: NIVOLUMAB
     Indication: NON-SMALL CELL LUNG CANCER
     Dosage: 3 MG/KG, Q2WK
     Route: 042
     Dates: start: 20170704, end: 20170927

REACTIONS (8)
  - Bronchial disorder [Unknown]
  - Staphylococcal infection [Unknown]
  - Myocardial infarction [Unknown]
  - Myocarditis [Unknown]
  - Stress cardiomyopathy [Recovering/Resolving]
  - Pulmonary embolism [Unknown]
  - Inflammation [Unknown]
  - Septic shock [Unknown]

NARRATIVE: CASE EVENT DATE: 20171008
